FAERS Safety Report 4597230-5 (Version None)
Quarter: 2005Q1

REPORT INFORMATION
  Report Type: 
  Country: None (occurrence: None)
  Receive Date: 20050301
  Receipt Date: 20050216
  Transmission Date: 20050727
  Serious: Yes (Other)
  Sender: FDA-Public Use
  Company Number: 2005035642

PATIENT
  Age: 35 Year
  Sex: Male
  Weight: 70 kg

DRUGS (8)
  1. RELPAX [Suspect]
     Indication: MIGRAINE
     Dosage: ORAL
     Route: 048
     Dates: start: 20040306
  2. FROVATRIPTAN (FROVATRIPTAN) [Suspect]
     Indication: MIGRAINE
     Dosage: 2.5 MG, UNKNOWN; ORAL
     Route: 048
     Dates: start: 20031029, end: 20031201
  3. AMITRIPTYLINE HCL [Concomitant]
  4. CODEINE PHOSPHATE AND ACETAMINOPHEN [Concomitant]
  5. CARBAMAZEPINE [Concomitant]
  6. PROPRANOLOL [Concomitant]
  7. LISINOPRIL [Concomitant]
  8. DOMPERIDONE [Concomitant]

REACTIONS (1)
  - CATARACT [None]
